FAERS Safety Report 7040041-1 (Version None)
Quarter: 2010Q4

REPORT INFORMATION
  Report Type: 
  Country: None (occurrence: None)
  Receive Date: 20101012
  Receipt Date: 20101007
  Transmission Date: 20110411
  Serious: Yes (Other)
  Sender: FDA-Public Use
  Company Number: US-AMGEN-KDL444345

PATIENT
  Sex: Male

DRUGS (4)
  1. PROCRIT [Suspect]
     Indication: ANAEMIA
     Route: 058
     Dates: start: 20100801, end: 20100901
  2. DIOVAN [Concomitant]
     Route: 048
     Dates: start: 20080801
  3. HYDROCHLOROTHIAZIDE [Concomitant]
     Route: 048
     Dates: start: 20050101
  4. CRESTOR [Concomitant]
     Route: 048

REACTIONS (1)
  - VEIN DISORDER [None]
